FAERS Safety Report 8432348-8 (Version None)
Quarter: 2012Q2

REPORT INFORMATION
  Report Type: 
  Country: None (occurrence: None)
  Receive Date: 20120613
  Receipt Date: 20120611
  Transmission Date: 20120825
  Serious: Yes (Death, Hospitalization, Other)
  Sender: FDA-Public Use
  Company Number: PHHY2012BR050007

PATIENT
  Sex: Female

DRUGS (2)
  1. TEGRETOL [Suspect]
     Indication: NERVOUS SYSTEM DISORDER
     Dosage: 1 DF, QD
     Route: 048
  2. TOFRANIL [Suspect]
     Indication: NERVOUS SYSTEM DISORDER
     Dosage: 1 DF, TID
     Route: 048

REACTIONS (2)
  - DEATH [None]
  - URINARY TRACT INFECTION [None]
